FAERS Safety Report 19212455 (Version 1)
Quarter: 2021Q2

REPORT INFORMATION
  Report Type: Spontaneous
  Country: US (occurrence: US)
  Receive Date: 20210428
  Receipt Date: 20210428
  Transmission Date: 20210717
  Serious: Yes (Hospitalization)
  Sender: FDA-Public Use
  Company Number: None

PATIENT
  Sex: Male
  Weight: 69.4 kg

DRUGS (6)
  1. ONCASPAR [Suspect]
     Active Substance: PEGASPARGASE
     Indication: HYPERSENSITIVITY
     Dosage: ?          OTHER DOSE:350000 UNIT;?
     Dates: end: 20210419
  2. VINCRISTINE SULFATE. [Suspect]
     Active Substance: VINCRISTINE SULFATE
     Dates: end: 20210419
  3. CYCLOPHASPHAMIDE [Suspect]
     Active Substance: CYCLOPHOSPHAMIDE
     Dates: end: 20210405
  4. CYTARABINE. [Suspect]
     Active Substance: CYTARABINE
     Dates: end: 20210412
  5. METHOTREXATE. [Suspect]
     Active Substance: METHOTREXATE
     Dates: end: 20210412
  6. DOXORUBICIN HYDROCHLORIDE. [Suspect]
     Active Substance: DOXORUBICIN HYDROCHLORIDE
     Dates: end: 20210322

REACTIONS (14)
  - Paralysis [None]
  - Facial paresis [None]
  - Vomiting [None]
  - Nausea [None]
  - Leukoencephalopathy [None]
  - Dysarthria [None]
  - Anxiety [None]
  - Malaise [None]
  - Seizure [None]
  - Photophobia [None]
  - Mental status changes [None]
  - Tachycardia [None]
  - Headache [None]
  - Asthenia [None]

NARRATIVE: CASE EVENT DATE: 20210419
